FAERS Safety Report 25992704 (Version 1)
Quarter: 2025Q4

REPORT INFORMATION
  Report Type: Report from Study
  Country: US (occurrence: US)
  Receive Date: 20251103
  Receipt Date: 20251103
  Transmission Date: 20260119
  Serious: Yes (Hospitalization)
  Sender: NOVO NORDISK
  Company Number: US-NOVOPROD-1508333

PATIENT
  Age: 71 Year
  Sex: Male

DRUGS (10)
  1. LOSARTAN [Concomitant]
     Active Substance: LOSARTAN
     Indication: Product used for unknown indication
     Dosage: 100 MG/12.5 MG
  2. PRAVASTATIN [Concomitant]
     Active Substance: PRAVASTATIN
     Indication: Product used for unknown indication
     Dosage: 10 MG QD
  3. EZETIMIBE [Concomitant]
     Active Substance: EZETIMIBE
     Indication: Product used for unknown indication
     Dosage: 10 MG QD
  4. NIFEDIPINE [Concomitant]
     Active Substance: NIFEDIPINE
     Indication: Product used for unknown indication
     Dosage: 60 MG QD
  5. DAPAGLIFLOZIN [Concomitant]
     Active Substance: DAPAGLIFLOZIN
     Indication: Product used for unknown indication
     Dosage: 10 MG, QD
  6. VASCEPA [Concomitant]
     Active Substance: ICOSAPENT ETHYL
     Indication: Product used for unknown indication
     Dosage: 2 G, QD
  7. GLIPIZIDE XL [Concomitant]
     Active Substance: GLIPIZIDE
     Indication: Product used for unknown indication
     Dosage: 20 MG, QD
  8. OZEMPIC [Suspect]
     Active Substance: SEMAGLUTIDE
     Indication: Type 2 diabetes mellitus
     Dosage: 2 MG, QW
     Dates: start: 20231227, end: 20250312
  9. OZEMPIC [Suspect]
     Active Substance: SEMAGLUTIDE
     Indication: Type 2 diabetes mellitus
     Dosage: 1 MG
     Dates: start: 202206, end: 20231227
  10. OZEMPIC [Suspect]
     Active Substance: SEMAGLUTIDE
     Indication: Type 2 diabetes mellitus
     Dosage: UNK
     Dates: start: 2025

REACTIONS (11)
  - Asthenia [Recovered/Resolved]
  - Dehydration [Recovered/Resolved]
  - Hypotension [Recovered/Resolved]
  - Mucosal dryness [Recovered/Resolved]
  - Nausea [Recovered/Resolved]
  - Tachycardia [Recovered/Resolved]
  - Vomiting [Recovered/Resolved]
  - Intentional product misuse [Unknown]
  - Product dose omission issue [Unknown]
  - Intentional product misuse [Unknown]
  - Product use issue [Unknown]

NARRATIVE: CASE EVENT DATE: 20250101
